FAERS Safety Report 5761479-6 (Version None)
Quarter: 2008Q2

REPORT INFORMATION
  Report Type: 
  Country: None (occurrence: None)
  Receive Date: 20080606
  Receipt Date: 20080605
  Transmission Date: 20081010
  Serious: Yes (Hospitalization)
  Sender: FDA-Public Use
  Company Number: SG-BOEHRINGER INGELHEIM GMBH, GERMANY-2008-BP-08757SG

PATIENT
  Sex: Male

DRUGS (5)
  1. SPIRIVA [Suspect]
  2. FLIXONASE NASAL SPRAY [Concomitant]
  3. NEBULISER PULMICORT:COMBIVENT:NORMAL SALINE [Concomitant]
  4. NEBULISER COMBIVENT:NORMAL SALINE [Concomitant]
  5. ROMESEC [Concomitant]

REACTIONS (2)
  - CARDIAC FAILURE [None]
  - DYSPNOEA [None]
